FAERS Safety Report 11205655 (Version 2)
Quarter: 2015Q2

REPORT INFORMATION
  Report Type: Spontaneous
  Country: US (occurrence: US)
  Receive Date: 20150622
  Receipt Date: 20150626
  Transmission Date: 20150821
  Serious: Yes (Other)
  Sender: FDA-Public Use
  Company Number: US-BAYER-2015-328326

PATIENT
  Sex: Male

DRUGS (1)
  1. AVELOX [Suspect]
     Active Substance: MOXIFLOXACIN HYDROCHLORIDE
     Indication: INFECTION
     Dosage: UNK
     Dates: start: 20050815

REACTIONS (14)
  - Anhedonia [None]
  - Discomfort [None]
  - Neuropathy peripheral [None]
  - Dysstasia [None]
  - Anxiety [None]
  - Pain [None]
  - Pain in extremity [None]
  - Neuropathy peripheral [None]
  - Paraesthesia [None]
  - Hypoaesthesia [None]
  - Gait disturbance [None]
  - Injury [None]
  - Emotional distress [None]
  - Activities of daily living impaired [None]

NARRATIVE: CASE EVENT DATE: 200509
